FAERS Safety Report 20635434 (Version 3)
Quarter: 2022Q2

REPORT INFORMATION
  Report Type: Report from Study
  Country: CA (occurrence: CA)
  Receive Date: 20220325
  Receipt Date: 20220603
  Transmission Date: 20220720
  Serious: Yes (Hospitalization)
  Sender: FDA-Public Use
  Company Number: CA-BoehringerIngelheim-2022-BI-160588

PATIENT
  Sex: Male

DRUGS (2)
  1. OFEV [Suspect]
     Active Substance: NINTEDANIB
     Indication: Idiopathic pulmonary fibrosis
     Route: 048
     Dates: start: 20190228, end: 20220321
  2. OFEV [Suspect]
     Active Substance: NINTEDANIB
     Route: 048
     Dates: start: 202204

REACTIONS (8)
  - Glomerulonephritis [Recovered/Resolved]
  - Renal impairment [Recovering/Resolving]
  - Streptococcal infection [Recovered/Resolved]
  - Kidney infection [Recovered/Resolved]
  - Weight decreased [Recovering/Resolving]
  - Dyspnoea [Not Recovered/Not Resolved]
  - Cough [Recovering/Resolving]
  - Weight increased [Unknown]
